FAERS Safety Report 5345527-3 (Version None)
Quarter: 2007Q2

REPORT INFORMATION
  Report Type: 
  Country: None (occurrence: None)
  Receive Date: 20070531
  Receipt Date: 20070524
  Transmission Date: 20071010
  Serious: Yes (Other)
  Sender: FDA-Public Use
  Company Number: 013675

PATIENT
  Age: 34 Year
  Sex: Female
  Weight: 90.7 kg

DRUGS (1)
  1. PLAN B [Suspect]
     Indication: CONTRACEPTION
     Dosage: 2 TABLET, SINGLE, ORAL
     Route: 048
     Dates: start: 20070522, end: 20070522

REACTIONS (7)
  - BREAST TENDERNESS [None]
  - DIZZINESS [None]
  - FATIGUE [None]
  - LOSS OF CONSCIOUSNESS [None]
  - MENSTRUATION IRREGULAR [None]
  - METRORRHAGIA [None]
  - SYNCOPE [None]
